FAERS Safety Report 5465541-7 (Version None)
Quarter: 2007Q3

REPORT INFORMATION
  Report Type: 
  Country: None (occurrence: None)
  Receive Date: 20070924
  Receipt Date: 19980112
  Transmission Date: 20080115
  Serious: Yes (Death)
  Sender: FDA-Public Use
  Company Number: DE-PFIZER INC-2006118300

PATIENT
  Sex: Male

DRUGS (6)
  1. IRINOTECAN HCL [Suspect]
     Indication: NON-SMALL CELL LUNG CANCER
     Dosage: DAILY DOSE:142MG
     Route: 042
     Dates: start: 19971223, end: 19971223
  2. IRINOTECAN HCL [Suspect]
     Dosage: DAILY DOSE:142MG
     Route: 042
     Dates: start: 19971230, end: 19971230
  3. IRINOTECAN HCL [Suspect]
     Dosage: DAILY DOSE:142MG
     Route: 042
     Dates: start: 19980108, end: 19980108
  4. LOPERAMIDE HCL [Concomitant]
  5. PREDNISOLONE [Concomitant]
     Dosage: DAILY DOSE:20MG
     Route: 048
  6. TROPISETRON [Concomitant]

REACTIONS (1)
  - RESPIRATORY FAILURE [None]
